FAERS Safety Report 19886657 (Version 1)
Quarter: 2021Q3

REPORT INFORMATION
  Report Type: Spontaneous
  Country: US (occurrence: US)
  Receive Date: 20210927
  Receipt Date: 20210927
  Transmission Date: 20211014
  Serious: No
  Sender: FDA-Public Use
  Company Number: US-PFIZER INC-2021291290

PATIENT
  Age: 56 Year
  Sex: Male
  Weight: 73.94 kg

DRUGS (2)
  1. DEPO?TESTOSTERONE [Suspect]
     Active Substance: TESTOSTERONE CYPIONATE
     Indication: BLOOD TESTOSTERONE DECREASED
     Dosage: 0.7 ML, WEEKLY
     Route: 030
     Dates: start: 2011
  2. DEPO?TESTOSTERONE [Suspect]
     Active Substance: TESTOSTERONE CYPIONATE
     Indication: ERECTILE DYSFUNCTION
     Dosage: 0.7 ML, WEEKLY
     Route: 030
     Dates: start: 2011

REACTIONS (2)
  - Drug ineffective [Unknown]
  - Visual impairment [Unknown]
